FAERS Safety Report 5867946-9 (Version None)
Quarter: 2008Q3

REPORT INFORMATION
  Report Type: 
  Country: None (occurrence: None)
  Receive Date: 20080902
  Receipt Date: 20080825
  Transmission Date: 20090109
  Serious: No
  Sender: FDA-Public Use
  Company Number: US-BOEHRINGER INGELHEIM GMBH, GERMANY-2008-BP-04293BP

PATIENT
  Sex: Female

DRUGS (4)
  1. ZANTAC 75 [Suspect]
     Indication: GASTROOESOPHAGEAL REFLUX DISEASE
     Route: 048
     Dates: start: 20080220
  2. LIPITOR [Suspect]
     Indication: BLOOD CHOLESTEROL INCREASED
     Dates: start: 20080310
  3. TOPROL-XL [Concomitant]
     Indication: HYPERTENSION
  4. RISPERIDONE [Concomitant]
     Indication: DEPRESSION

REACTIONS (6)
  - BURNING SENSATION [None]
  - DRY EYE [None]
  - GINGIVAL PAIN [None]
  - ORAL DISCOMFORT [None]
  - PERINEAL PAIN [None]
  - SKIN DISORDER [None]
